FAERS Safety Report 4489679-6 (Version None)
Quarter: 2004Q4

REPORT INFORMATION
  Report Type: 
  Country: None (occurrence: None)
  Receive Date: 20041101
  Receipt Date: 20041026
  Transmission Date: 20050328
  Serious: Yes (Hospitalization, Other)
  Sender: FDA-Public Use
  Company Number: PHBS2004BE14388

PATIENT
  Age: 68 Year
  Sex: Male

DRUGS (3)
  1. CYCLOSPORINE [Suspect]
     Indication: HEART TRANSPLANT
     Dosage: 100 MG, BID
     Route: 065
  2. PREDNISOLONE [Concomitant]
     Indication: HEART TRANSPLANT
     Dosage: 5 MG/D
     Route: 065
  3. ANGIOTENSIN CONVERTING ENZYME BLOCKERS [Concomitant]

REACTIONS (15)
  - AORTIC DISSECTION [None]
  - AORTIC VALVE INCOMPETENCE [None]
  - AORTIC VALVE REPLACEMENT [None]
  - ARTERIAL ANEURYSM REPAIR [None]
  - BUNDLE BRANCH BLOCK RIGHT [None]
  - CARDIAC MURMUR [None]
  - CARDIOMEGALY [None]
  - CHEST PAIN [None]
  - COUGH [None]
  - DYSPNOEA [None]
  - HYPERTENSION [None]
  - PULMONARY OEDEMA [None]
  - RALES [None]
  - RESPIRATORY DISTRESS [None]
  - VENOUS PRESSURE JUGULAR INCREASED [None]
